FAERS Safety Report 18447126 (Version 1)
Quarter: 2020Q4

REPORT INFORMATION
  Report Type: Spontaneous
  Country: US (occurrence: US)
  Receive Date: 20201030
  Receipt Date: 20201030
  Transmission Date: 20210114
  Serious: Yes (Death)
  Sender: FDA-Public Use
  Company Number: None

PATIENT
  Age: 59 Year
  Sex: Male
  Weight: 85.73 kg

DRUGS (5)
  1. RETEVMO [Suspect]
     Active Substance: SELPERCATINIB
     Indication: SQUAMOUS CELL CARCINOMA
     Route: 048
     Dates: start: 20200602, end: 20201020
  2. GABAPENTIN. [Concomitant]
     Active Substance: GABAPENTIN
  3. HYDROCORTISONE. [Concomitant]
     Active Substance: HYDROCORTISONE
  4. OXYCODONE [Concomitant]
     Active Substance: OXYCODONE
  5. OMEPRAZOLE. [Concomitant]
     Active Substance: OMEPRAZOLE

REACTIONS (1)
  - Death [None]

NARRATIVE: CASE EVENT DATE: 20201020
